FAERS Safety Report 8992924 (Version 1)
Quarter: 2013Q1

REPORT INFORMATION
  Report Type: Report from Study
  Country: CA (occurrence: CA)
  Receive Date: 20130102
  Receipt Date: 20130102
  Transmission Date: 20140127
  Serious: Yes (Other)
  Sender: FDA-Public Use
  Company Number: CA-JNJFOC-20121212692

PATIENT
  Age: 15 Year
  Sex: Female
  Weight: 42 kg

DRUGS (4)
  1. REMICADE [Suspect]
     Indication: CROHN^S DISEASE
     Route: 042
     Dates: start: 20121109
  2. PREDNISONE [Concomitant]
     Route: 065
  3. PROBIOTICS [Concomitant]
     Route: 065
  4. LANSOPRAZOLE [Concomitant]
     Route: 065

REACTIONS (1)
  - Clostridium difficile infection [Recovering/Resolving]
